FAERS Safety Report 4527889-X (Version None)
Quarter: 2004Q4

REPORT INFORMATION
  Report Type: 
  Country: None (occurrence: None)
  Receive Date: 20041123
  Receipt Date: 20031208
  Transmission Date: 20050328
  Serious: Yes (Other)
  Sender: FDA-Public Use
  Company Number: HQWYE489509DEC03

PATIENT
  Age: 64 Year
  Sex: Male
  Weight: 69.01 kg

DRUGS (12)
  1. ZOSYN [Suspect]
     Indication: OSTEOMYELITIS
     Dosage: 3.375 G 1X PER 8 HR, INTRAVENOUS
     Route: 042
     Dates: start: 20030912, end: 20031002
  2. AVAPRO [Concomitant]
  3. METOPROLOL TARTRATE [Concomitant]
  4. LASIX [Concomitant]
  5. PLAVIX [Concomitant]
  6. ASPIRIN [Concomitant]
  7. IMDUR [Concomitant]
  8. TIMOLOL MALEATE [Concomitant]
  9. ACULAR [Concomitant]
  10. LOTEMAX (LOTEPREDNOL ETABONATE) [Concomitant]
  11. ALLEGRA [Concomitant]
  12. TYLENOL [Concomitant]

REACTIONS (2)
  - NEUTROPENIA [None]
  - THROMBOCYTOPENIA [None]
